FAERS Safety Report 6286123-3 (Version None)
Quarter: 2009Q3

REPORT INFORMATION
  Report Type: 
  Country: None (occurrence: None)
  Receive Date: 20090728
  Receipt Date: 20090702
  Transmission Date: 20100115
  Serious: No
  Sender: FDA-Public Use
  Company Number: US-ROCHE-642103

PATIENT
  Age: 82 Year
  Sex: Male
  Weight: 67 kg

DRUGS (1)
  1. TAMIFLU [Suspect]
     Dosage: AFTER EVERY OTHER HEMODIALYSIS FOR 10 DAYS; POWDER FOR SUSPENSION
     Route: 048
     Dates: start: 20090630, end: 20090711

REACTIONS (2)
  - NO ADVERSE EVENT [None]
  - WRONG TECHNIQUE IN DRUG USAGE PROCESS [None]
